FAERS Safety Report 19745628 (Version 5)
Quarter: 2022Q3

REPORT INFORMATION
  Report Type: Report from Study
  Country: US (occurrence: US)
  Receive Date: 20210825
  Receipt Date: 20220714
  Transmission Date: 20221026
  Serious: No
  Sender: FDA-Public Use
  Company Number: NVSC2021US190905

PATIENT
  Sex: Male

DRUGS (1)
  1. ENTRESTO [Suspect]
     Active Substance: SACUBITRIL\VALSARTAN
     Indication: Cardiac failure
     Dosage: 1 DOSAGE FORM, BID, (24/ 26 MG)
     Route: 048
     Dates: start: 20210731

REACTIONS (10)
  - Balance disorder [Unknown]
  - Weight decreased [Recovering/Resolving]
  - Depression [Recovered/Resolved]
  - Cardiac disorder [Unknown]
  - Heart rate irregular [Recovered/Resolved]
  - Weight increased [Unknown]
  - Fall [Unknown]
  - Dizziness [Unknown]
  - Product dose omission issue [Unknown]
  - Inappropriate schedule of product administration [Unknown]

NARRATIVE: CASE EVENT DATE: 20210101
